FAERS Safety Report 6366872-9 (Version None)
Quarter: 2009Q3

REPORT INFORMATION
  Report Type: 
  Country: None (occurrence: None)
  Receive Date: 20090921
  Receipt Date: 20090915
  Transmission Date: 20100115
  Serious: Yes (Hospitalization)
  Sender: FDA-Public Use
  Company Number: DE-ALLERGAN-0912914US

PATIENT
  Age: 50 Year
  Sex: Female

DRUGS (2)
  1. BOTOX [Suspect]
     Indication: SKIN WRINKLING
     Dosage: UNK
     Route: 030
     Dates: start: 20090101, end: 20090101
  2. BOTOX [Suspect]
     Dosage: UNK
     Route: 030
     Dates: start: 20080101, end: 20080101

REACTIONS (2)
  - EMPHYSEMA [None]
  - PNEUMOTHORAX [None]
